FAERS Safety Report 25767032 (Version 1)
Quarter: 2025Q3

REPORT INFORMATION
  Report Type: Spontaneous
  Country: US (occurrence: US)
  Receive Date: 20250905
  Receipt Date: 20250905
  Transmission Date: 20251021
  Serious: Yes (Death)
  Sender: NOVARTIS
  Company Number: US-002147023-NVSC2025US138587

PATIENT
  Sex: Male

DRUGS (1)
  1. PLUVICTO [Suspect]
     Active Substance: LUTETIUM LU-177 VIPIVOTIDE TETRAXETAN
     Indication: Hormone-refractory prostate cancer
     Route: 065

REACTIONS (2)
  - Cerebral haemorrhage [Fatal]
  - Full blood count abnormal [Unknown]
